FAERS Safety Report 20584418 (Version 2)
Quarter: 2022Q2

REPORT INFORMATION
  Report Type: Other
  Country: US (occurrence: None)
  Receive Date: 20220311
  Receipt Date: 20220420
  Transmission Date: 20220721
  Serious: No
  Sender: FDA-Public Use
  Company Number: US-ROCHE-3045612

PATIENT
  Age: 66 Year
  Sex: Female
  Weight: 58.112 kg

DRUGS (1)
  1. OCREVUS [Suspect]
     Active Substance: OCRELIZUMAB
     Indication: Primary progressive multiple sclerosis
     Dosage: TWO 300 MG VIAL, DATE OF MOST RECENT INFUSION :09/SEP/2021
     Route: 065
     Dates: start: 20180108

REACTIONS (2)
  - COVID-19 [Not Recovered/Not Resolved]
  - Drug ineffective [Unknown]

NARRATIVE: CASE EVENT DATE: 20220303
